FAERS Safety Report 8178812-0 (Version None)
Quarter: 2012Q1

REPORT INFORMATION
  Report Type: 
  Country: None (occurrence: None)
  Receive Date: 20120301
  Receipt Date: 20120223
  Transmission Date: 20120608
  Serious: Yes (Hospitalization)
  Sender: FDA-Public Use
  Company Number: JP-BRISTOL-MYERS SQUIBB COMPANY-16419335

PATIENT
  Age: 71 Year
  Sex: Male

DRUGS (2)
  1. PARAPLATIN [Suspect]
     Indication: LUNG SQUAMOUS CELL CARCINOMA STAGE UNSPECIFIED
     Route: 041
     Dates: start: 20120216, end: 20120216
  2. TS-1 [Suspect]
     Route: 048
     Dates: start: 20120216, end: 20120218

REACTIONS (1)
  - INTERSTITIAL LUNG DISEASE [None]
